FAERS Safety Report 7913707-6 (Version None)
Quarter: 2011Q4

REPORT INFORMATION
  Report Type: 
  Country: None (occurrence: None)
  Receive Date: 20111110
  Receipt Date: 20111107
  Transmission Date: 20120403
  Serious: Yes (Life-Threatening, Hospitalization)
  Sender: FDA-Public Use
  Company Number: AUR-APL-2011-05005

PATIENT
  Age: 79 Year
  Sex: Female

DRUGS (16)
  1. ADCAL-D3 (LEKOVITCA) [Concomitant]
  2. BENDROFLUMETHIAZIDE [Concomitant]
  3. ACETAMINOPHEN [Concomitant]
  4. ZOLPIDEM [Concomitant]
  5. CITALOPRAM HYDROBROMIDE [Concomitant]
  6. ASPIRIN [Concomitant]
  7. ACETAMINOPHEN W/ CODEINE [Concomitant]
  8. OMEPRAZOLE [Concomitant]
  9. PERINDOPRIL ERBUMINE [Concomitant]
  10. LAMOTRIGINE [Suspect]
     Indication: NERVOUS SYSTEM DISORDER
     Dosage: 50 MG (25 MG, 2 IN 1 D), ORAL; 100 MG (50 MG, 2 IN 1 D), ORAL
     Route: 048
     Dates: start: 20110811, end: 20110822
  11. LAMOTRIGINE [Suspect]
     Indication: CONVULSION
     Dosage: 50 MG (25 MG, 2 IN 1 D), ORAL; 100 MG (50 MG, 2 IN 1 D), ORAL
     Route: 048
     Dates: start: 20110811, end: 20110822
  12. LAMOTRIGINE [Suspect]
     Indication: NERVOUS SYSTEM DISORDER
     Dosage: 50 MG (25 MG, 2 IN 1 D), ORAL; 100 MG (50 MG, 2 IN 1 D), ORAL
     Route: 048
     Dates: start: 20110807, end: 20110810
  13. LAMOTRIGINE [Suspect]
     Indication: CONVULSION
     Dosage: 50 MG (25 MG, 2 IN 1 D), ORAL; 100 MG (50 MG, 2 IN 1 D), ORAL
     Route: 048
     Dates: start: 20110807, end: 20110810
  14. PHENYTOIN [Concomitant]
  15. BISOPROLOL FUMARATE [Concomitant]
  16. TRAVOPROST [Concomitant]

REACTIONS (9)
  - NEUTROPHIL COUNT DECREASED [None]
  - NEUTROPENIC SEPSIS [None]
  - RASH ERYTHEMATOUS [None]
  - PYREXIA [None]
  - ESCHERICHIA URINARY TRACT INFECTION [None]
  - WHITE BLOOD CELL COUNT DECREASED [None]
  - HAEMOGLOBIN DECREASED [None]
  - BLOOD COUNT ABNORMAL [None]
  - PLATELET COUNT DECREASED [None]
